FAERS Safety Report 15905335 (Version 1)
Quarter: 2019Q1

REPORT INFORMATION
  Report Type: Spontaneous
  Country: US (occurrence: US)
  Receive Date: 20190204
  Receipt Date: 20190204
  Transmission Date: 20190417
  Serious: No
  Sender: FDA-Public Use
  Company Number: US-DRREDDYS-USA/USA/19/0107096

PATIENT
  Sex: Female
  Weight: 61.36 kg

DRUGS (1)
  1. HABITROL [Suspect]
     Active Substance: NICOTINE
     Indication: SMOKING CESSATION THERAPY
     Dosage: 14 MG PATCH EVERY 24 HOURS
     Route: 062

REACTIONS (3)
  - Application site erythema [Recovered/Resolved]
  - Application site irritation [Unknown]
  - Application site pruritus [Recovered/Resolved]
